FAERS Safety Report 18156821 (Version 1)
Quarter: 2020Q3

REPORT INFORMATION
  Report Type: Spontaneous
  Country: US (occurrence: US)
  Receive Date: 20200817
  Receipt Date: 20200817
  Transmission Date: 20201103
  Serious: No
  Sender: FDA-Public Use
  Company Number: None

PATIENT
  Age: 55 Year
  Sex: Male

DRUGS (14)
  1. FLUOROURACIL. [Concomitant]
     Active Substance: FLUOROURACIL
  2. KLOR?CON [Concomitant]
     Active Substance: POTASSIUM CHLORIDE
  3. FLONASE [Concomitant]
     Active Substance: FLUTICASONE PROPIONATE
  4. BRAFTOVI [Suspect]
     Active Substance: ENCORAFENIB
     Indication: COLON CANCER
     Route: 048
     Dates: start: 20200725
  5. XARELTO [Concomitant]
     Active Substance: RIVAROXABAN
  6. FAMOTIDINE. [Concomitant]
     Active Substance: FAMOTIDINE
  7. ONDANSETRON HYDROCHLORIDE. [Concomitant]
     Active Substance: ONDANSETRON HYDROCHLORIDE
  8. PROCHLORPERAZINE MALEATE. [Concomitant]
     Active Substance: PROCHLORPERAZINE MALEATE
  9. GABAPENTIN. [Concomitant]
     Active Substance: GABAPENTIN
  10. LORAZEPAM. [Concomitant]
     Active Substance: LORAZEPAM
  11. DEXAMETHASONE. [Concomitant]
     Active Substance: DEXAMETHASONE
  12. OMEPRAZOLE. [Concomitant]
     Active Substance: OMEPRAZOLE
  13. HEPARIN SODIUM. [Concomitant]
     Active Substance: HEPARIN SODIUM
  14. LISINOPRIL. [Concomitant]
     Active Substance: LISINOPRIL

REACTIONS (1)
  - Cerebrovascular accident [None]
